FAERS Safety Report 17072455 (Version 1)
Quarter: 2019Q4

REPORT INFORMATION
  Report Type: Spontaneous
  Country: BE (occurrence: BE)
  Receive Date: 20191125
  Receipt Date: 20191125
  Transmission Date: 20200122
  Serious: Yes (Disabling)
  Sender: FDA-Public Use
  Company Number: BE-MYLANLABS-2019M1112996

PATIENT
  Sex: Male

DRUGS (4)
  1. REDOMEX [Concomitant]
     Active Substance: AMITRIPTYLINE HYDROCHLORIDE
     Dosage: 3 DOSAGE FORM, QD
  2. GAMBARAN [Suspect]
     Active Substance: NABUMETONE
     Indication: PRODUCT USED FOR UNKNOWN INDICATION
     Dosage: 1 DOSAGE FORM, QD
  3. FENTANYL TRANSDERMAL SYSTEM [Concomitant]
     Active Substance: FENTANYL
     Dosage: 1 DOSAGE FORM, MONTHLY
  4. QUETIAPIN [Concomitant]
     Active Substance: QUETIAPINE
     Dosage: 1 DOSAGE FORM, QD

REACTIONS (2)
  - Cervicobrachial syndrome [Not Recovered/Not Resolved]
  - Condition aggravated [Not Recovered/Not Resolved]
